FAERS Safety Report 8365140-3 (Version None)
Quarter: 2012Q2

REPORT INFORMATION
  Report Type: 
  Country: None (occurrence: None)
  Receive Date: 20120516
  Receipt Date: 20120508
  Transmission Date: 20120825
  Serious: Yes (Other)
  Sender: FDA-Public Use
  Company Number: US-ABBOTT-12P-163-0924059-00

PATIENT
  Sex: Female
  Weight: 79.45 kg

DRUGS (13)
  1. DEPAKOTE [Suspect]
     Indication: PRODUCT USED FOR UNKNOWN INDICATION
  2. DIOVAN [Concomitant]
  3. COQ10 [Concomitant]
     Indication: PRODUCT USED FOR UNKNOWN INDICATION
  4. LITHIUM CARBONATE [Suspect]
     Indication: PRODUCT USED FOR UNKNOWN INDICATION
  5. DIOVAN [Concomitant]
     Indication: HYPERTENSION
  6. ASPIRIN [Concomitant]
     Indication: PAIN
     Dosage: 325MG UP TO TID DAILY PRN
  7. HUMIRA [Suspect]
     Indication: RHEUMATOID ARTHRITIS
     Dates: start: 20110901
  8. PRAVASTATIN [Concomitant]
     Indication: BLOOD CHOLESTEROL INCREASED
  9. KLONOPIN [Concomitant]
     Indication: PRODUCT USED FOR UNKNOWN INDICATION
  10. LOVAZA [Concomitant]
     Indication: PRODUCT USED FOR UNKNOWN INDICATION
     Dosage: 3-6 TABS A DAY, (1000MG) DAILY
  11. NAPROXEN (ALEVE) [Suspect]
     Indication: PRODUCT USED FOR UNKNOWN INDICATION
  12. XOPENEX [Concomitant]
     Indication: PRODUCT USED FOR UNKNOWN INDICATION
  13. SINGULAIR [Concomitant]
     Indication: HYPERSENSITIVITY

REACTIONS (26)
  - RENAL FAILURE [None]
  - PAIN IN EXTREMITY [None]
  - LOSS OF CONSCIOUSNESS [None]
  - MYOCARDIAL CALCIFICATION [None]
  - HERPES ZOSTER [None]
  - MICTURITION URGENCY [None]
  - WALKING AID USER [None]
  - HEPATIC FAILURE [None]
  - MENTAL DISORDER [None]
  - PANIC ATTACK [None]
  - CHOLELITHIASIS [None]
  - DYSURIA [None]
  - NEURALGIA [None]
  - INJECTION SITE PAIN [None]
  - NEPHROLITHIASIS [None]
  - PRURITUS [None]
  - AMNESIA [None]
  - ABNORMAL BEHAVIOUR [None]
  - LUNG NEOPLASM [None]
  - THYROID DISORDER [None]
  - RENAL DISORDER [None]
  - VULVOVAGINAL PRURITUS [None]
  - SINUSITIS [None]
  - CYSTITIS [None]
  - FALL [None]
  - ASTHENIA [None]
